FAERS Safety Report 4323743-7 (Version None)
Quarter: 2004Q1

REPORT INFORMATION
  Report Type: 
  Country: None (occurrence: None)
  Receive Date: 20040319
  Receipt Date: 20040305
  Transmission Date: 20041129
  Serious: Yes (Other)
  Sender: FDA-Public Use
  Company Number: A0501406A

PATIENT
  Age: 71 Year
  Sex: Male

DRUGS (4)
  1. NICODERM CQ [Suspect]
     Indication: EX-SMOKER
     Dosage: 21 MG//TRANSDERMAL
     Route: 062
     Dates: start: 20040117, end: 20040229
  2. NICODERM CQ [Suspect]
     Indication: EX-SMOKER
     Dosage: 14 MG//TRANSDERMAL
     Route: 062
     Dates: start: 20040201, end: 20040201
  3. GLUCOVANCE [Concomitant]
  4. RAMIPRIL [Concomitant]

REACTIONS (3)
  - DIZZINESS [None]
  - HAEMOCHROMATOSIS [None]
  - NERVOUSNESS [None]
